FAERS Safety Report 13935279 (Version 1)
Quarter: 2017Q3

REPORT INFORMATION
  Report Type: Spontaneous
  Country: US (occurrence: US)
  Receive Date: 20170905
  Receipt Date: 20170905
  Transmission Date: 20171127
  Serious: Yes (Hospitalization)
  Sender: FDA-Public Use
  Company Number: US-TARO PHARMACEUTICALS USA.,INC-2017SUN00299

PATIENT
  Age: 80 Year
  Sex: Male

DRUGS (1)
  1. PHENYTOIN SODIUM. [Suspect]
     Active Substance: PHENYTOIN SODIUM
     Indication: SEIZURE
     Dosage: UNK
     Route: 065

REACTIONS (5)
  - Haemoptysis [Recovered/Resolved]
  - Respiratory failure [Unknown]
  - Acquired haemophilia [Unknown]
  - Activated partial thromboplastin time prolonged [Recovering/Resolving]
  - Pemphigoid [Recovering/Resolving]
